FAERS Safety Report 5486926-9 (Version None)
Quarter: 2007Q4

REPORT INFORMATION
  Report Type: 
  Country: None (occurrence: None)
  Receive Date: 20071012
  Receipt Date: 20071012
  Transmission Date: 20080405
  Serious: Yes (Life-Threatening, Hospitalization)
  Sender: FDA-Public Use
  Company Number: None

PATIENT
  Age: 44 Year
  Sex: Male
  Weight: 88.4514 kg

DRUGS (2)
  1. MAGNEVIST [Suspect]
     Indication: NUCLEAR MAGNETIC RESONANCE IMAGING
     Dosage: IV
     Route: 042
     Dates: start: 20070222, end: 20070222
  2. MAGNEVIST [Suspect]
     Indication: SCAN WITH CONTRAST
     Dosage: IV
     Route: 042
     Dates: start: 20070222, end: 20070222

REACTIONS (17)
  - ACNE [None]
  - ARTHRALGIA [None]
  - COUGH [None]
  - ERYTHEMA [None]
  - FATIGUE [None]
  - IMPAIRED WORK ABILITY [None]
  - LYMPH NODE PAIN [None]
  - LYMPHADENOPATHY [None]
  - LYMPHANGITIS [None]
  - MELANOCYTIC NAEVUS [None]
  - MUSCULOSKELETAL CHEST PAIN [None]
  - OCULAR SURFACE DISEASE [None]
  - PRURITUS [None]
  - PYREXIA [None]
  - RASH [None]
  - SKIN BURNING SENSATION [None]
  - THROMBOSIS [None]
